FAERS Safety Report 21841304 (Version 2)
Quarter: 2023Q1

REPORT INFORMATION
  Report Type: Spontaneous
  Country: US (occurrence: US)
  Receive Date: 20230110
  Receipt Date: 20230207
  Transmission Date: 20230417
  Serious: No
  Sender: FDA-Public Use
  Company Number: US-JNJFOC-20221255466

PATIENT
  Age: 57 Year
  Sex: Male
  Weight: 117.9 kg

DRUGS (6)
  1. IMODIUM [Suspect]
     Active Substance: LOPERAMIDE HYDROCHLORIDE
     Indication: Diarrhoea
     Route: 065
     Dates: start: 2022
  2. TYVASO [Concomitant]
     Active Substance: TREPROSTINIL
     Indication: Pulmonary arterial hypertension
     Dosage: 16 G
     Route: 055
     Dates: start: 2022
  3. TYVASO [Concomitant]
     Active Substance: TREPROSTINIL
     Route: 055
     Dates: start: 2022
  4. TYVASO [Concomitant]
     Active Substance: TREPROSTINIL
     Dosage: 9 BREATH
     Route: 055
     Dates: start: 2022
  5. TYVASO [Concomitant]
     Active Substance: TREPROSTINIL
     Dosage: 54 G, QID, INHALATION
     Route: 055
     Dates: start: 2022
  6. REVATIO [Concomitant]
     Active Substance: SILDENAFIL CITRATE
     Indication: Product used for unknown indication
     Route: 065

REACTIONS (2)
  - Constipation [Unknown]
  - Therapy non-responder [Unknown]
